FAERS Safety Report 16063683 (Version 1)
Quarter: 2019Q1

REPORT INFORMATION
  Report Type: Report from Study
  Country: ES (occurrence: ES)
  Receive Date: 20190312
  Receipt Date: 20190312
  Transmission Date: 20190418
  Serious: Yes (Other)
  Sender: FDA-Public Use
  Company Number: ES-PFIZER INC-2019102549

PATIENT
  Age: 6 Year
  Sex: Male

DRUGS (5)
  1. CYTARABINE. [Suspect]
     Active Substance: CYTARABINE
     Indication: ACUTE LYMPHOCYTIC LEUKAEMIA
     Dosage: 1700 MG, DAILY
     Route: 042
     Dates: start: 20171022, end: 20171022
  2. DEXAMETHASONE. [Suspect]
     Active Substance: DEXAMETHASONE
     Indication: ACUTE LYMPHOCYTIC LEUKAEMIA
     Dosage: 9 MG, 2X/DAY
     Route: 042
     Dates: start: 20171018, end: 20171022
  3. CYCLOPHOSPHAMIDE. [Suspect]
     Active Substance: CYCLOPHOSPHAMIDE
     Indication: ACUTE LYMPHOCYTIC LEUKAEMIA
     Dosage: 172 MG, 2X/DAY
     Route: 042
     Dates: start: 20171020, end: 20171022
  4. VINCRISTINE SULFATE. [Suspect]
     Active Substance: VINCRISTINE SULFATE
     Indication: ACUTE LYMPHOCYTIC LEUKAEMIA
     Dosage: 2.6 MG, ONCE EVERY 5 DAYS
     Route: 042
     Dates: start: 20171018, end: 20171023
  5. METHOTREXATE SODIUM. [Suspect]
     Active Substance: METHOTREXATE SODIUM
     Indication: ACUTE LYMPHOCYTIC LEUKAEMIA
     Dosage: 860 MG, DAILY
     Route: 042
     Dates: start: 20171018, end: 20171019

REACTIONS (4)
  - Pancytopenia [Recovered/Resolved]
  - Urinary tract infection [Recovered/Resolved]
  - Hepatitis [Recovered/Resolved]
  - Stomatitis [Recovered/Resolved]

NARRATIVE: CASE EVENT DATE: 20171023
